FAERS Safety Report 7584680-8 (Version None)
Quarter: 2011Q2

REPORT INFORMATION
  Report Type: 
  Country: None (occurrence: None)
  Receive Date: 20110630
  Receipt Date: 20110628
  Transmission Date: 20111010
  Serious: Yes (Other)
  Sender: FDA-Public Use
  Company Number: US-GILEAD-2011-0036437

PATIENT
  Sex: Male

DRUGS (4)
  1. LOPRESSOR [Concomitant]
  2. LIPITOR [Concomitant]
  3. VIREAD [Suspect]
     Indication: HEPATITIS B
     Dates: start: 20080101
  4. AMIODARONE HCL [Concomitant]

REACTIONS (1)
  - MYOCARDIAL INFARCTION [None]
